FAERS Safety Report 4737934-4 (Version None)
Quarter: 2005Q3

REPORT INFORMATION
  Report Type: 
  Country: None (occurrence: None)
  Receive Date: 20050805
  Receipt Date: 20050725
  Transmission Date: 20060218
  Serious: Yes (Other)
  Sender: FDA-Public Use
  Company Number: B0388809A

PATIENT

DRUGS (1)
  1. LITHIUM SALT (LITHIUM SALT) (GENERIC) [Suspect]
     Indication: BIPOLAR DISORDER

REACTIONS (3)
  - NEPHROGENIC DIABETES INSIPIDUS [None]
  - RENAL FAILURE [None]
  - THERAPEUTIC AGENT TOXICITY [None]
